FAERS Safety Report 24771271 (Version 1)
Quarter: 2024Q4

REPORT INFORMATION
  Report Type: Report from Study
  Country: BR (occurrence: BR)
  Receive Date: 20241224
  Receipt Date: 20241224
  Transmission Date: 20250115
  Serious: Yes (Other)
  Sender: NOVARTIS
  Company Number: BR-002147023-NVSC2022BR119440

PATIENT
  Age: 57 Year
  Sex: Male

DRUGS (8)
  1. COSENTYX [Suspect]
     Active Substance: SECUKINUMAB
     Indication: Ankylosing spondylitis
     Dosage: 150 MG, QMO
     Route: 065
     Dates: start: 202112
  2. COSENTYX [Suspect]
     Active Substance: SECUKINUMAB
     Dosage: 150 MG, QW
     Route: 065
  3. COSENTYX [Suspect]
     Active Substance: SECUKINUMAB
     Dosage: 150 MG, QW
     Route: 065
     Dates: start: 20220516
  4. COSENTYX [Suspect]
     Active Substance: SECUKINUMAB
     Dosage: 150 MG, QMO
     Route: 065
  5. COSENTYX [Suspect]
     Active Substance: SECUKINUMAB
     Dosage: 300 MG, QMO
     Route: 065
     Dates: start: 20220617
  6. COSENTYX [Suspect]
     Active Substance: SECUKINUMAB
     Dosage: 300 MG, QMO
     Route: 065
     Dates: start: 202208
  7. ETANERCEPT [Suspect]
     Active Substance: ETANERCEPT
     Indication: Product used for unknown indication
     Dosage: 50 MG, QW
     Route: 065
  8. DIPROSPAN [Concomitant]
     Active Substance: BETAMETHASONE DIPROPIONATE\BETAMETHASONE SODIUM PHOSPHATE
     Indication: Product used for unknown indication
     Dosage: UNK
     Route: 065

REACTIONS (27)
  - Sepsis [Unknown]
  - Formication [Unknown]
  - Irritability [Unknown]
  - Sensory disturbance [Unknown]
  - Sensitivity to weather change [Unknown]
  - Fall [Unknown]
  - Rhinitis allergic [Unknown]
  - Dizziness [Recovering/Resolving]
  - Peripheral swelling [Unknown]
  - Arthritis [Unknown]
  - Fatigue [Unknown]
  - Malaise [Unknown]
  - Inflammation [Unknown]
  - Pain [Not Recovered/Not Resolved]
  - Swelling [Not Recovered/Not Resolved]
  - Loss of libido [Unknown]
  - Joint swelling [Not Recovered/Not Resolved]
  - Nasal congestion [Unknown]
  - Rhinitis [Recovered/Resolved]
  - Confusional state [Unknown]
  - Therapeutic response shortened [Unknown]
  - Nervousness [Unknown]
  - Respiratory disorder [Not Recovered/Not Resolved]
  - Boredom [Unknown]
  - Spinal pain [Unknown]
  - Mood altered [Unknown]
  - Respiration abnormal [Unknown]

NARRATIVE: CASE EVENT DATE: 20220617
